FAERS Safety Report 7985564-3 (Version None)
Quarter: 2011Q4

REPORT INFORMATION
  Report Type: 
  Country: None (occurrence: None)
  Receive Date: 20111216
  Receipt Date: 20111211
  Transmission Date: 20120403
  Serious: Yes (Death, Other)
  Sender: FDA-Public Use
  Company Number: AU-JNJFOC-20110100984

PATIENT
  Sex: Male
  Weight: 79.6 kg

DRUGS (9)
  1. STELARA [Suspect]
     Indication: PSORIASIS
     Route: 058
     Dates: start: 20100414
  2. STELARA [Suspect]
     Route: 058
     Dates: start: 20101027
  3. STELARA [Suspect]
     Route: 058
     Dates: start: 20110408
  4. STELARA [Suspect]
     Route: 058
     Dates: start: 20110705
  5. STELARA [Suspect]
     Route: 058
     Dates: start: 20110115
  6. STELARA [Suspect]
     Route: 058
     Dates: start: 20110928
  7. STELARA [Suspect]
     Route: 058
     Dates: start: 20100512
  8. VITAMIN B COMPLEX CAP [Concomitant]
  9. STELARA [Suspect]
     Route: 058
     Dates: start: 20100804

REACTIONS (5)
  - COELIAC DISEASE [None]
  - ABDOMINAL DISCOMFORT [None]
  - DRUG INEFFECTIVE [None]
  - PSORIASIS [None]
  - DEATH [None]
